FAERS Safety Report 9378415 (Version 1)
Quarter: 2013Q3

REPORT INFORMATION
  Report Type: Spontaneous
  Country: US (occurrence: US)
  Receive Date: 20130701
  Receipt Date: 20130701
  Transmission Date: 20140515
  Serious: Yes (Death)
  Sender: FDA-Public Use
  Company Number: US-RB-000136-08

PATIENT
  Age: 55 Year
  Sex: Male

DRUGS (5)
  1. SUBOXONE [Suspect]
     Indication: DRUG DEPENDENCE
     Route: 060
     Dates: start: 20080128, end: 20080128
  2. SUBOXONE [Suspect]
     Route: 060
     Dates: start: 20080206
  3. TOPROL [Concomitant]
     Indication: MYOCARDIAL INFARCTION
     Route: 048
  4. QUINAPRIL [Concomitant]
     Indication: MYOCARDIAL INFARCTION
     Route: 048
  5. PLAVIX [Concomitant]
     Indication: COAGULOPATHY
     Route: 048

REACTIONS (4)
  - Drug withdrawal syndrome [Recovered/Resolved]
  - Oedema peripheral [Recovered/Resolved]
  - Urinary hesitation [Recovered/Resolved]
  - Death [Fatal]
